FAERS Safety Report 25602555 (Version 1)
Quarter: 2025Q3

REPORT INFORMATION
  Report Type: Spontaneous
  Country: EU (occurrence: EU)
  Receive Date: 20250724
  Receipt Date: 20250724
  Transmission Date: 20251021
  Serious: Yes (Hospitalization)
  Sender: MERCK SHARP & DOHME LLC
  Company Number: None

PATIENT
  Age: 56 Year
  Sex: Male
  Weight: 75.6 kg

DRUGS (20)
  1. NOXAFIL [Suspect]
     Active Substance: POSACONAZOLE
     Indication: Antifungal prophylaxis
     Dosage: DOSE DESCRIPTION : 300 MILLIGRAM, QD?DAILY DOSE : 300 MILLIGRAM
     Route: 048
     Dates: start: 2021
  2. PREVYMIS [Suspect]
     Active Substance: LETERMOVIR
     Indication: Antiviral prophylaxis
     Dosage: DOSE DESCRIPTION : 480 MILLIGRAM, Q12H?DAILY DOSE : 960 MILLIGRAM
     Route: 048
     Dates: start: 20211220
  3. ARANESP [Suspect]
     Active Substance: DARBEPOETIN ALFA
     Indication: Anaemia
     Dosage: DOSE DESCRIPTION : 300 MICROGRAM, QD?DAILY DOSE : 300 MICROGRAM
     Route: 058
     Dates: start: 20220125
  4. CALCIUM CARBONATE [Suspect]
     Active Substance: CALCIUM CARBONATE
     Indication: Vitamin supplementation
     Dosage: DOSE DESCRIPTION : 2 DOSAGE FORM, QD?DAILY DOSE : 2 DOSAGE FORM
     Route: 048
     Dates: start: 20220125
  5. AMLODIPINE BESYLATE [Suspect]
     Active Substance: AMLODIPINE BESYLATE
     Indication: Hypertension
     Dosage: DOSE DESCRIPTION : 5 MILLIGRAM, QD?DAILY DOSE : 5 MILLIGRAM
     Route: 048
     Dates: start: 20220125
  6. ELTROMBOPAG OLAMINE [Suspect]
     Active Substance: ELTROMBOPAG OLAMINE
     Indication: Thrombocytopenia
     Dosage: DOSE DESCRIPTION : 225 MILLIGRAM, QD?DAILY DOSE : 225 MILLIGRAM
     Route: 042
     Dates: start: 20220125
  7. PREDNISONE [Suspect]
     Active Substance: PREDNISONE
     Indication: Prophylaxis against transplant rejection
     Dosage: DOSE DESCRIPTION : 30 MILLIGRAM, QD?DAILY DOSE : 30 MILLIGRAM
     Route: 048
     Dates: start: 20211229
  8. FILGRASTIM [Suspect]
     Active Substance: FILGRASTIM
     Indication: Neutropenia
     Route: 042
     Dates: start: 20211220
  9. ESOMEPRAZOLE [Suspect]
     Active Substance: ESOMEPRAZOLE
     Indication: Prophylaxis against gastrointestinal ulcer
     Dosage: DOSE DESCRIPTION : 40 MILLIGRAM, QD?DAILY DOSE : 40 MILLIGRAM
     Route: 048
     Dates: start: 20220125
  10. URSODIOL [Suspect]
     Active Substance: URSODIOL
     Indication: Product used for unknown indication
     Dosage: DOSE DESCRIPTION : 250 MILLIGRAM, Q12H?DAILY DOSE : 500 MILLIGRAM
     Route: 048
     Dates: start: 20211220
  11. LEUCOVORIN CALCIUM [Suspect]
     Active Substance: LEUCOVORIN CALCIUM
     Indication: Haematotoxicity
     Dosage: DOSE DESCRIPTION : 525 MILLIGRAM, QD?DAILY DOSE : 525 MILLIGRAM
     Route: 048
     Dates: start: 20220125
  12. VALACYCLOVIR HYDROCHLORIDE [Suspect]
     Active Substance: VALACYCLOVIR HYDROCHLORIDE
     Indication: Antiviral prophylaxis
     Dosage: DOSE DESCRIPTION : 500 MILLIGRAM, Q12H?DAILY DOSE : 1000 MILLIGRAM
     Route: 048
     Dates: start: 2021
  13. FUROSEMIDE [Suspect]
     Active Substance: FUROSEMIDE
     Indication: Product used for unknown indication
     Dosage: DOSE DESCRIPTION : 40 MILLIGRAM, QD?DAILY DOSE : 40 MILLIGRAM
     Route: 048
     Dates: start: 20211220
  14. BACTRIM [Suspect]
     Active Substance: SULFAMETHOXAZOLE\TRIMETHOPRIM
     Indication: Opportunistic infection prophylaxis
     Route: 048
     Dates: start: 20211221
  15. ACETAMINOPHEN [Suspect]
     Active Substance: ACETAMINOPHEN
     Indication: Product used for unknown indication
     Route: 048
     Dates: start: 2021
  16. FUNGIZONE [Suspect]
     Active Substance: AMPHOTERICIN B
     Indication: Product used for unknown indication
     Route: 048
     Dates: start: 20211220
  17. CELLCEPT [Suspect]
     Active Substance: MYCOPHENOLATE MOFETIL
     Indication: Prophylaxis against transplant rejection
     Dosage: DOSE DESCRIPTION : UNK UNK, Q12H
     Route: 048
     Dates: start: 20220125, end: 20220503
  18. FLUDARABINE [Suspect]
     Active Substance: FLUDARABINE PHOSPHATE
     Indication: Product used for unknown indication
     Route: 065
  19. SALICYLIC ACID [Concomitant]
     Active Substance: SALICYLIC ACID
  20. CYCLOPHOSPHAMIDE [Concomitant]
     Active Substance: CYCLOPHOSPHAMIDE

REACTIONS (2)
  - Renal failure [Not Recovered/Not Resolved]
  - Condition aggravated [Not Recovered/Not Resolved]

NARRATIVE: CASE EVENT DATE: 20210101
